FAERS Safety Report 21795454 (Version 1)
Quarter: 2022Q4

REPORT INFORMATION
  Report Type: Spontaneous
  Country: US (occurrence: None)
  Receive Date: 20221228
  Receipt Date: 20221228
  Transmission Date: 20230113
  Serious: Yes (Hospitalization)
  Sender: FDA-Public Use
  Company Number: None

PATIENT
  Age: 50 Year
  Sex: Female

DRUGS (17)
  1. TACROLIMUS [Suspect]
     Active Substance: TACROLIMUS
     Indication: Nephritic syndrome
     Dosage: FREQUENCY : TWICE A DAY;?
     Route: 048
     Dates: start: 20211102
  2. TACROLIMUS [Suspect]
     Active Substance: TACROLIMUS
     Indication: Focal segmental glomerulosclerosis
  3. BIOTIN TAB [Concomitant]
  4. CALCITRIOL CAP [Concomitant]
  5. CHLOROQUINE TAB [Concomitant]
  6. ELIQUIS [Concomitant]
     Active Substance: APIXABAN
  7. EZETIMIBE TAB [Concomitant]
  8. FARXIGA TAB [Concomitant]
  9. FENOFIBRATE TAB [Concomitant]
  10. IRON TAB [Concomitant]
  11. LANTUS INJ [Concomitant]
  12. LIPITOR TAB [Concomitant]
  13. MAGNESIUM TAB [Concomitant]
  14. SYNTHROID TAB [Concomitant]
  15. TRADJENTA TAB [Concomitant]
  16. VITAMIN D3 [Concomitant]
     Active Substance: CHOLECALCIFEROL
  17. ZOLOFT [Concomitant]
     Active Substance: SERTRALINE HYDROCHLORIDE

REACTIONS (2)
  - Staphylococcal infection [None]
  - Therapy interrupted [None]

NARRATIVE: CASE EVENT DATE: 20221205
